FAERS Safety Report 6216793-7 (Version None)
Quarter: 2009Q2

REPORT INFORMATION
  Report Type: 
  Country: None (occurrence: None)
  Receive Date: 20090603
  Receipt Date: 20090603
  Transmission Date: 20091009
  Serious: Yes (Other)
  Sender: FDA-Public Use
  Company Number: None

PATIENT
  Sex: Male
  Weight: 104.3273 kg

DRUGS (7)
  1. SEROQUEL [Suspect]
     Indication: PSYCHOTIC DISORDER
     Dosage: 100 MG 2X DAILY
     Dates: start: 20090101, end: 20090201
  2. ABILIFY [Suspect]
     Indication: PARANOIA
     Dosage: UNKNOWN 2X DAILY
     Dates: start: 20090201, end: 20090501
  3. DILANTIN [Concomitant]
  4. LAMICTAL [Concomitant]
  5. METFORMAN [Concomitant]
  6. PRILOSEC [Concomitant]
  7. ALBUTEROL [Concomitant]

REACTIONS (9)
  - AGGRESSION [None]
  - ANXIETY [None]
  - BLOOD GLUCOSE INCREASED [None]
  - CONFUSIONAL STATE [None]
  - DEHYDRATION [None]
  - DYSARTHRIA [None]
  - DYSPHAGIA [None]
  - HYPOAESTHESIA [None]
  - VISION BLURRED [None]
